FAERS Safety Report 17508498 (Version 2)
Quarter: 2020Q2

REPORT INFORMATION
  Report Type: Spontaneous
  Country: JP (occurrence: JP)
  Receive Date: 20200306
  Receipt Date: 20200401
  Transmission Date: 20200713
  Serious: Yes (Other)
  Sender: FDA-Public Use
  Company Number: JP-SUNOVION-2019SUN002806

PATIENT
  Age: 40 Year
  Sex: Female

DRUGS (5)
  1. PYRETHIA [Concomitant]
     Active Substance: PROMETHAZINE HYDROCHLORIDE
     Dosage: DOSE UNKNOWN
     Route: 048
     Dates: start: 2004
  2. CONTOMIN [Concomitant]
     Active Substance: CHLORPROMAZINE
     Indication: ANXIETY
     Dosage: 12.5 MG, QD
     Route: 048
     Dates: start: 20101021
  3. LUNESTA [Suspect]
     Active Substance: ESZOPICLONE
     Indication: INSOMNIA
     Dosage: 3 MG, QD
     Route: 048
     Dates: start: 20170905, end: 20190624
  4. PYRETHIA [Concomitant]
     Active Substance: PROMETHAZINE HYDROCHLORIDE
     Indication: SEDATION
     Dosage: 5 MG, QD
     Route: 048
     Dates: start: 20101021
  5. BELSOMRA [Concomitant]
     Active Substance: SUVOREXANT
     Indication: INSOMNIA
     Dosage: 20 MG, QD
     Route: 048
     Dates: start: 20160322, end: 20190624

REACTIONS (2)
  - Exposure during pregnancy [Unknown]
  - Abortion spontaneous [Recovered/Resolved]

NARRATIVE: CASE EVENT DATE: 20190625
